FAERS Safety Report 7384735-7 (Version None)
Quarter: 2011Q1

REPORT INFORMATION
  Report Type: 
  Country: None (occurrence: None)
  Receive Date: 20110330
  Receipt Date: 20110316
  Transmission Date: 20110831
  Serious: Yes (Hospitalization, Other)
  Sender: FDA-Public Use
  Company Number: PHHY2011MX21926

PATIENT
  Sex: Female

DRUGS (1)
  1. EXFORGE [Suspect]
     Indication: HYPERTENSION
     Dosage: VALSARTAN 160MG AND AMLODIPINE 10MG, (1 TABLET DAILY)
     Route: 048
     Dates: start: 20080301

REACTIONS (2)
  - BENIGN OVARIAN TUMOUR [None]
  - GROIN PAIN [None]
